FAERS Safety Report 7425949-7 (Version None)
Quarter: 2011Q2

REPORT INFORMATION
  Report Type: 
  Country: None (occurrence: None)
  Receive Date: 20110420
  Receipt Date: 20100411
  Transmission Date: 20111010
  Serious: Yes (Other)
  Sender: FDA-Public Use
  Company Number: US-BAYER-201018676NA

PATIENT
  Age: 52 Year
  Sex: Male
  Weight: 124.72 kg

DRUGS (30)
  1. TRASYLOL [Suspect]
     Indication: CORONARY ARTERY BYPASS
     Dosage: 1ML TEST DOSE, 100 ML LOADING DOSE
     Dates: start: 20050214, end: 20050214
  2. ASPIRIN [Concomitant]
     Dosage: 325 MG, QD
     Route: 048
     Dates: start: 19900101, end: 20050101
  3. NITROGLYCERIN [Concomitant]
     Dosage: 0.4MG EVERY 5 MINUTES PRN PAIN
     Route: 060
  4. HEPARIN [Concomitant]
     Dosage: 2000 U, UNK
     Route: 042
     Dates: start: 20050214, end: 20050214
  5. PACKED RED BLOOD CELLS [Concomitant]
     Dosage: 4 U, UNK
     Route: 042
     Dates: start: 20050214, end: 20050214
  6. SOLU-MEDROL [Concomitant]
     Dosage: 125 MG, UNK
     Route: 042
     Dates: start: 20050214, end: 20050214
  7. SOLU-MEDROL [Concomitant]
     Dosage: 250 MG, CARDIOPULMONARY BYPASS
     Dates: start: 20050214, end: 20050214
  8. LOPRESSOR [Concomitant]
     Dosage: 100 MG, BID
     Route: 048
  9. VECURONIUM BROMIDE [Concomitant]
     Dosage: 26 MG, UNK
     Route: 042
     Dates: start: 20050214, end: 20050214
  10. PROTAMINE SULFATE [Concomitant]
     Dosage: 500 MG, CARDIOPULMONARY BYPASS
     Dates: start: 20050214, end: 20050214
  11. NORVASC [Concomitant]
     Dosage: 5 MG, QD
     Route: 048
  12. NITROGLYCERIN [Concomitant]
     Dosage: DRIP
     Route: 042
     Dates: start: 20050214, end: 20050214
  13. MIDAZOLAM [Concomitant]
     Dosage: 15 MG, UNK
     Route: 042
     Dates: start: 20050214, end: 20050214
  14. SUFENTA PRESERVATIVE FREE [Concomitant]
     Dosage: 1000 MG, UNK
     Route: 042
     Dates: start: 20050214, end: 20050214
  15. REMIFENTANIL [Concomitant]
     Dosage: 10MG/KG/MIN
     Route: 042
     Dates: start: 20050214, end: 20050214
  16. INSULIN [Concomitant]
     Dosage: TIMES 1
     Route: 042
     Dates: start: 20050214, end: 20050214
  17. AVANDIA [Concomitant]
     Dosage: UNK
     Dates: start: 20040101
  18. NITROGLYCERIN [Concomitant]
     Dosage: 1 INCH Q6H TO CHEST WALL
  19. CEFAZOLIN [Concomitant]
     Dosage: 2 MG, UNK
     Route: 042
     Dates: start: 20050214, end: 20050214
  20. LASIX [Concomitant]
     Dosage: 40 MG, BID
     Route: 042
  21. HEPARIN [Concomitant]
     Dosage: 10000 UNITS, CARDIOPULMONARY BYPASS
     Dates: start: 20050214, end: 20050214
  22. PLATELETS [Concomitant]
     Dosage: 12 U, UNK
     Route: 042
     Dates: start: 20050214, end: 20050214
  23. CEFAZOLIN [Concomitant]
     Dosage: 2 MG, UNK
     Route: 042
     Dates: start: 20050214, end: 20050214
  24. PROPOFOL [Concomitant]
     Dosage: 50MG/KG/MIN
     Route: 042
     Dates: start: 20050214, end: 20050214
  25. HEPARIN [Concomitant]
     Dosage: 35000 UNITS
     Route: 042
     Dates: start: 20050214, end: 20050214
  26. NOVOLOG [Concomitant]
     Dosage: 35 UNITS BEFORE BREAKFAST AND BEFORE DINNER
     Route: 058
     Dates: start: 20040101
  27. TYLENOL REGULAR [Concomitant]
     Dosage: 650MG Q4-5H PRN FOR HEADACHES
     Route: 048
  28. ETOMIDATE [Concomitant]
     Dosage: 36 MG, UNK
     Route: 042
     Dates: start: 20050214, end: 20050214
  29. SUCCINYLCHOLINE CHLORIDE [Concomitant]
     Dosage: 160 MG, UNK
     Route: 042
     Dates: start: 20050214, end: 20050214
  30. FRESH FROZEN PLASMA [Concomitant]
     Dosage: 2 U, UNK
     Route: 042
     Dates: start: 20050214, end: 20050214

REACTIONS (8)
  - RENAL INJURY [None]
  - RENAL FAILURE [None]
  - RENAL IMPAIRMENT [None]
  - ANXIETY [None]
  - PAIN [None]
  - FEAR [None]
  - EMOTIONAL DISTRESS [None]
  - STRESS [None]
